FAERS Safety Report 12417985 (Version 1)
Quarter: 2016Q2

REPORT INFORMATION
  Report Type: Spontaneous
  Country: JP (occurrence: JP)
  Receive Date: 20160531
  Receipt Date: 20160531
  Transmission Date: 20160815
  Serious: Yes (Hospitalization, Other)
  Sender: FDA-Public Use
  Company Number: JP-009507513-1604JPN018427

PATIENT
  Age: 81 Year
  Sex: Male

DRUGS (10)
  1. BUFFERIN [Suspect]
     Active Substance: ASPIRIN
     Dosage: DAILY DOSE UNKOWN
     Route: 048
     Dates: end: 20160428
  2. MECOBALAMIN [Concomitant]
     Active Substance: METHYLCOBALAMIN
     Dosage: DAILY DOSAGE UNKNOWN
     Route: 048
  3. MAGNESIUM OXIDE. [Concomitant]
     Active Substance: MAGNESIUM OXIDE
     Dosage: DAILY DOSAGE UNKNOWN
     Route: 048
  4. LIVALO [Suspect]
     Active Substance: PITAVASTATIN CALCIUM
     Dosage: DAILY DOSE UNKNOWN
     Route: 048
  5. FAMOTIDINE. [Suspect]
     Active Substance: FAMOTIDINE
     Dosage: DAILY DOSE UNKNOWN
     Route: 048
  6. JANUVIA [Suspect]
     Active Substance: SITAGLIPTIN PHOSPHATE
     Dosage: DAILY DOSAGE UNKNOWN
     Route: 048
     Dates: end: 20160428
  7. BLOPRESS [Suspect]
     Active Substance: CANDESARTAN CILEXETIL
     Dosage: DAILY DOSAGE UNKNOWN
     Route: 048
  8. METGLUCO [Suspect]
     Active Substance: METFORMIN HYDROCHLORIDE
     Dosage: DAILY DOSAGE UNKNOWN
     Route: 048
     Dates: end: 20160428
  9. CEROCRAL [Concomitant]
     Active Substance: IFENPRODIL
     Dosage: DAILY DOSAGE UNKNOWN
     Route: 048
  10. FLUITRAN [Concomitant]
     Active Substance: TRICHLORMETHIAZIDE
     Dosage: DAILY DOSAGE UNKNOWN
     Route: 048

REACTIONS (2)
  - Urinary retention [Recovered/Resolved]
  - Blood creatine phosphokinase increased [Recovered/Resolved]

NARRATIVE: CASE EVENT DATE: 20160426
